FAERS Safety Report 7416228-2 (Version None)
Quarter: 2011Q2

REPORT INFORMATION
  Report Type: 
  Country: None (occurrence: None)
  Receive Date: 20110414
  Receipt Date: 20110411
  Transmission Date: 20111010
  Serious: Yes (Hospitalization, Other)
  Sender: FDA-Public Use
  Company Number: US-PFIZER INC-2011029995

PATIENT
  Sex: Female

DRUGS (2)
  1. VALACICLOVIR [Concomitant]
     Indication: VIRAL INFECTION
     Dosage: UNK
     Dates: start: 19990101, end: 20100101
  2. CHANTIX [Suspect]
     Indication: SMOKING CESSATION THERAPY
     Dosage: 0.5 MG/ 1 MG, UNK
     Dates: start: 20070801, end: 20071001

REACTIONS (10)
  - DEPRESSION [None]
  - ANXIETY [None]
  - AGGRESSION [None]
  - CONFUSIONAL STATE [None]
  - ABNORMAL BEHAVIOUR [None]
  - AMNESIA [None]
  - INSOMNIA [None]
  - SUICIDAL IDEATION [None]
  - SPEECH DISORDER [None]
  - PANIC ATTACK [None]
